FAERS Safety Report 6016532-9 (Version None)
Quarter: 2008Q4

REPORT INFORMATION
  Report Type: 
  Country: None (occurrence: None)
  Receive Date: 20081222
  Receipt Date: 20081218
  Transmission Date: 20090506
  Serious: Yes (Hospitalization)
  Sender: FDA-Public Use
  Company Number: DK-ASTRAZENECA-2008SE05785

PATIENT
  Age: 20268 Day
  Sex: Male
  Weight: 86 kg

DRUGS (3)
  1. CASODEX [Suspect]
     Indication: PROSTATE CANCER
     Route: 048
     Dates: start: 20070825
  2. SERTRALIN ^1A FARMA^ [Concomitant]
     Indication: DEPRESSION
     Route: 048
  3. MIANSERIN ^COPYFARM^ [Concomitant]
     Indication: DEPRESSION
     Route: 048

REACTIONS (8)
  - ASTHENIA [None]
  - BREAST DISCOMFORT [None]
  - CONSTIPATION [None]
  - DRY SKIN [None]
  - FATIGUE [None]
  - GYNAECOMASTIA [None]
  - HAIR GROWTH ABNORMAL [None]
  - LIBIDO DECREASED [None]
